FAERS Safety Report 23081833 (Version 1)
Quarter: 2023Q4

REPORT INFORMATION
  Report Type: Spontaneous
  Country: US (occurrence: US)
  Receive Date: 20231019
  Receipt Date: 20231019
  Transmission Date: 20240109
  Serious: No
  Sender: FDA-Public Use
  Company Number: US-009507513-2309USA008980

PATIENT
  Sex: Male

DRUGS (6)
  1. SIVEXTRO [Suspect]
     Active Substance: TEDIZOLID PHOSPHATE
     Indication: Anti-infective therapy
     Dosage: UNK
     Route: 042
     Dates: start: 2023, end: 2023
  2. SIVEXTRO [Suspect]
     Active Substance: TEDIZOLID PHOSPHATE
     Indication: Anti-infective therapy
     Dosage: UNK
     Route: 048
     Dates: start: 2023, end: 2023
  3. DOXYCYCLINE [Concomitant]
     Active Substance: DOXYCYCLINE
  4. VITAMIN B3 [Concomitant]
     Active Substance: NIACIN
  5. LINEZOLID [Concomitant]
     Active Substance: LINEZOLID
     Dosage: UNK
     Dates: start: 2023, end: 2023
  6. LINEZOLID [Concomitant]
     Active Substance: LINEZOLID
     Dosage: CUT IN HALF AND TAKE ONE EVERY 12 HOURS
     Dates: start: 2023

REACTIONS (6)
  - Nausea [Recovering/Resolving]
  - Parosmia [Recovering/Resolving]
  - Dyspepsia [Recovering/Resolving]
  - Peripheral swelling [Recovering/Resolving]
  - Product supply issue [Unknown]
  - Product dose omission issue [Unknown]

NARRATIVE: CASE EVENT DATE: 20230101
